FAERS Safety Report 8543280-3 (Version None)
Quarter: 2012Q3

REPORT INFORMATION
  Report Type: 
  Country: None (occurrence: None)
  Receive Date: 20120727
  Receipt Date: 20120713
  Transmission Date: 20120928
  Serious: Yes (Death, Life-Threatening, Hospitalization)
  Sender: FDA-Public Use
  Company Number: DE-RANBAXY-2011RR-41134

PATIENT
  Age: 35 Year
  Sex: Male
  Weight: 85 kg

DRUGS (1)
  1. CEFUROXIME [Suspect]
     Indication: SELF-MEDICATION
     Dosage: UNK
     Route: 048

REACTIONS (3)
  - HYPOXIC-ISCHAEMIC ENCEPHALOPATHY [None]
  - CARDIOVASCULAR INSUFFICIENCY [None]
  - ANAPHYLACTIC REACTION [None]
